FAERS Safety Report 4723487-3 (Version None)
Quarter: 2005Q3

REPORT INFORMATION
  Report Type: 
  Country: None (occurrence: None)
  Receive Date: 20050725
  Receipt Date: 20050719
  Transmission Date: 20060218
  Serious: Yes (Other)
  Sender: FDA-Public Use
  Company Number: AU-GLAXOSMITHKLINE-B0388445A

PATIENT
  Sex: Male

DRUGS (3)
  1. AROPAX [Suspect]
     Indication: BIPOLAR DISORDER
     Dosage: 10MG FOUR TIMES PER DAY
     Route: 048
  2. CAPADEX [Suspect]
     Route: 065
     Dates: start: 20050712
  3. ZYDOL [Concomitant]
     Indication: DRUG USE FOR UNKNOWN INDICATION
     Route: 065

REACTIONS (4)
  - ANXIETY [None]
  - DRUG INTERACTION [None]
  - HALLUCINATION [None]
  - PALPITATIONS [None]
